FAERS Safety Report 8592107-2 (Version None)
Quarter: 2012Q3

REPORT INFORMATION
  Report Type: 
  Country: None (occurrence: None)
  Receive Date: 20120814
  Receipt Date: 20120626
  Transmission Date: 20120928
  Serious: Yes (Hospitalization, Other)
  Sender: FDA-Public Use
  Company Number: KR-RANBAXY-2012RR-56738

PATIENT
  Age: 39 Year
  Sex: Female

DRUGS (1)
  1. AMOXICILLIN [Suspect]
     Indication: ACTINOMYCOSIS
     Dosage: 2 G/DAY
     Route: 048
     Dates: start: 20100119, end: 20100406

REACTIONS (1)
  - HEPATITIS CHOLESTATIC [None]
